FAERS Safety Report 8801159 (Version 2)
Quarter: 2012Q4

REPORT INFORMATION
  Report Type: 
  Country: FR (occurrence: FR)
  Receive Date: 20120920
  Receipt Date: 20121012
  Transmission Date: 20130627
  Serious: Yes (Hospitalization)
  Sender: FDA-Public Use
  Company Number: FR-ROCHE-1131035

PATIENT
  Sex: Female

DRUGS (4)
  1. LUCENTIS [Suspect]
     Indication: PRODUCT USED FOR UNKNOWN INDICATION
     Dosage: both eyes
     Route: 050
  2. TEVETEN [Concomitant]
  3. ESIDREX [Concomitant]
  4. ZOLPIDEM [Concomitant]

REACTIONS (5)
  - Herpes zoster [Recovered/Resolved]
  - Varicella [Recovered/Resolved]
  - Burnout syndrome [Unknown]
  - Amnesia [Recovered/Resolved with Sequelae]
  - Malaise [Recovered/Resolved with Sequelae]
